FAERS Safety Report 6953258-9 (Version None)
Quarter: 2010Q3

REPORT INFORMATION
  Report Type: 
  Country: None (occurrence: None)
  Receive Date: 20100829
  Receipt Date: 20100608
  Transmission Date: 20110219
  Serious: No
  Sender: FDA-Public Use
  Company Number: US-ABBOTT-10P-163-0649611-00

PATIENT
  Sex: Female
  Weight: 104.42 kg

DRUGS (8)
  1. NIASPAN [Suspect]
     Indication: HYPERLIPIDAEMIA
     Dosage: 1000 MG DAILY AT BEDTIME
     Dates: start: 20100604
  2. NIASPAN [Suspect]
     Dosage: 500 MG DAILY AT BEDTIME
     Dates: start: 20100503, end: 20100604
  3. NIASPAN [Suspect]
     Dosage: AT BEDTIME
     Dates: start: 20100503, end: 20100604
  4. UNKNOWN MEDICATION [Concomitant]
     Indication: BLOOD PRESSURE
  5. UNKNOWN MEDICATION [Concomitant]
     Indication: DIABETES MELLITUS
  6. MOBIC [Concomitant]
     Indication: PRODUCT USED FOR UNKNOWN INDICATION
  7. ASPIRIN [Concomitant]
     Indication: PRODUCT USED FOR UNKNOWN INDICATION
     Dosage: DAILY
  8. UNKNOWN MEDICATION [Concomitant]
     Indication: PAIN

REACTIONS (4)
  - ASTHENIA [None]
  - DIARRHOEA [None]
  - MALAISE [None]
  - NAUSEA [None]
